FAERS Safety Report 23976778 (Version 1)
Quarter: 2024Q2

REPORT INFORMATION
  Report Type: Spontaneous
  Country: US (occurrence: US)
  Receive Date: 20240614
  Receipt Date: 20240614
  Transmission Date: 20240716
  Serious: No
  Sender: FDA-Public Use
  Company Number: US-Kindeva Drug Delivery L.P.-2158142

PATIENT
  Sex: Female

DRUGS (2)
  1. ALBUTEROL SULFATE [Suspect]
     Active Substance: ALBUTEROL SULFATE
     Route: 055
  2. UNSPECIFIED INGREDIENT [Suspect]
     Active Substance: UNSPECIFIED INGREDIENT

REACTIONS (8)
  - Drug ineffective [Unknown]
  - Respiratory tract congestion [Unknown]
  - Product after taste [Unknown]
  - Expired device used [Unknown]
  - Dyspnoea [Unknown]
  - Dyspnoea [Unknown]
  - Device malfunction [Unknown]
  - Drug delivery system malfunction [Unknown]
